FAERS Safety Report 12482667 (Version 1)
Quarter: 2016Q2

REPORT INFORMATION
  Report Type: Spontaneous
  Country: US (occurrence: US)
  Receive Date: 20160620
  Receipt Date: 20160620
  Transmission Date: 20160815
  Serious: No
  Sender: FDA-Public Use
  Company Number: US-TEVA-666568USA

PATIENT
  Sex: Female

DRUGS (18)
  1. KEPPRA [Concomitant]
     Active Substance: LEVETIRACETAM
  2. GABAPENTIN. [Concomitant]
     Active Substance: GABAPENTIN
  3. COPAXONE [Suspect]
     Active Substance: GLATIRAMER ACETATE
     Indication: MULTIPLE SCLEROSIS
     Route: 058
     Dates: start: 2014
  4. LUNESTA [Concomitant]
     Active Substance: ESZOPICLONE
  5. KLONOPIN [Concomitant]
     Active Substance: CLONAZEPAM
  6. MAXALT [Concomitant]
     Active Substance: RIZATRIPTAN BENZOATE
  7. CA CITRATE [Concomitant]
  8. LEVETIRACETAM. [Concomitant]
     Active Substance: LEVETIRACETAM
  9. PILOCARPINE. [Concomitant]
     Active Substance: PILOCARPINE
  10. VITAMIN D3 [Concomitant]
     Active Substance: CHOLECALCIFEROL
  11. NASONEX [Concomitant]
     Active Substance: MOMETASONE FUROATE
  12. PRAVASTATIN [Concomitant]
     Active Substance: PRAVASTATIN\PRAVASTATIN SODIUM
  13. TRILEPTAL [Concomitant]
     Active Substance: OXCARBAZEPINE
  14. ZYRTEC [Concomitant]
     Active Substance: CETIRIZINE HYDROCHLORIDE
  15. ESTRADIOL. [Concomitant]
     Active Substance: ESTRADIOL
  16. PANTOPRAZOLE [Concomitant]
     Active Substance: PANTOPRAZOLE SODIUM
  17. BACTRIM DS [Concomitant]
     Active Substance: SULFAMETHOXAZOLE\TRIMETHOPRIM
  18. ACETYL ALA [Concomitant]

REACTIONS (1)
  - Fatigue [Unknown]
